FAERS Safety Report 15603859 (Version 5)
Quarter: 2020Q2

REPORT INFORMATION
  Report Type: Spontaneous
  Country: US (occurrence: US)
  Receive Date: 20181109
  Receipt Date: 20200505
  Transmission Date: 20200713
  Serious: Yes (Hospitalization)
  Sender: FDA-Public Use
  Company Number: US-CELGENEUS-USA-20181011592

PATIENT
  Age: 79 Year
  Sex: Female
  Weight: 46.7 kg

DRUGS (36)
  1. ZYRTEC [Concomitant]
     Active Substance: CETIRIZINE HYDROCHLORIDE
     Indication: BRONCHIECTASIS
     Dosage: 10 MILLIGRAM
     Route: 048
     Dates: start: 2017
  2. MULTIVITAMINS [Concomitant]
     Active Substance: VITAMINS
     Indication: NUTRITIONAL SUPPLEMENTATION
     Dosage: 1 TABLET
     Route: 048
     Dates: start: 20170703
  3. MIRTAZAPINE. [Concomitant]
     Active Substance: MIRTAZAPINE
     Indication: HYPERSENSITIVITY
     Dosage: 10 MILLIGRAM
     Route: 048
     Dates: start: 20170622
  4. ONDANSETRON [Concomitant]
     Active Substance: ONDANSETRON
     Dosage: 8 MILLIGRAM
     Route: 048
     Dates: start: 20180623
  5. LORAZEPAM. [Concomitant]
     Active Substance: LORAZEPAM
     Indication: HYPERSENSITIVITY
     Dosage: 10 MILLIGRAM
     Route: 048
     Dates: start: 20170622
  6. AZACITIDINE. [Suspect]
     Active Substance: AZACITIDINE
     Indication: ACUTE MYELOID LEUKAEMIA
     Dosage: 75 MILLIGRAM/SQ. METER
     Route: 041
     Dates: start: 20170706, end: 20180122
  7. VENETOCLAX. [Concomitant]
     Active Substance: VENETOCLAX
     Indication: ACUTE MYELOID LEUKAEMIA
     Dosage: 100 MILLIGRAM
     Route: 048
     Dates: start: 20170706, end: 20170706
  8. ISAVUCONAZOLE [Concomitant]
     Active Substance: ISAVUCONAZOLE
     Indication: PROPHYLAXIS
     Dosage: 372 MILLIGRAM
     Route: 048
     Dates: start: 20170731
  9. MIRTAZAPINE. [Concomitant]
     Active Substance: MIRTAZAPINE
     Dosage: 15 MILLIGRAM
     Route: 048
     Dates: start: 20170823
  10. HYDROCODONE-ACETAMINOPHEN [Concomitant]
     Active Substance: ACETAMINOPHEN\HYDROCODONE
     Dosage: 2 TABLET
     Route: 048
     Dates: start: 20180722
  11. ISAVUCONAZONIUM SULFATE [Concomitant]
     Active Substance: ISAVUCONAZONIUM SULFATE
     Indication: ANTIFUNGAL PROPHYLAXIS
     Dosage: 372 MILLIGRAM
     Route: 048
     Dates: start: 20180723
  12. ONDANSETRON [Concomitant]
     Active Substance: ONDANSETRON
     Indication: NAUSEA
     Dosage: 24 MILLIGRAM
     Route: 048
     Dates: start: 20180520
  13. ALLOPURINOL. [Concomitant]
     Active Substance: ALLOPURINOL
     Indication: PROPHYLAXIS
     Dosage: 300 MILLIGRAM
     Route: 048
     Dates: start: 20180703, end: 20180713
  14. ACYCLOVIR. [Concomitant]
     Active Substance: ACYCLOVIR
     Indication: INFECTION PROPHYLAXIS
     Dosage: 400 MILLIGRAM
     Route: 048
     Dates: start: 2017
  15. MIRTAZAPINE. [Concomitant]
     Active Substance: MIRTAZAPINE
     Indication: INSOMNIA
     Dosage: 15 MILLIGRAM
     Route: 048
     Dates: start: 20180415
  16. ONDANSETRON [Concomitant]
     Active Substance: ONDANSETRON
     Indication: HYPERSENSITIVITY
     Dosage: 10 MILLIGRAM
     Route: 048
     Dates: start: 20170622
  17. AZACITIDINE. [Suspect]
     Active Substance: AZACITIDINE
     Dosage: 25.2 MILLIGRAM/SQ. METER
     Route: 041
     Dates: start: 20180305, end: 20180729
  18. ZYRTEC [Concomitant]
     Active Substance: CETIRIZINE HYDROCHLORIDE
     Indication: HYPERSENSITIVITY
     Dosage: 10 MILLIGRAM
     Route: 048
     Dates: start: 20170622
  19. TEMAZEPAM. [Concomitant]
     Active Substance: TEMAZEPAM
     Indication: INSOMNIA
     Dosage: 30 MILLIGRAM
     Route: 048
     Dates: start: 20170816
  20. BACLOFEN. [Concomitant]
     Active Substance: BACLOFEN
     Indication: NECK PAIN
     Dosage: 5 MILLIGRAM
     Route: 048
     Dates: start: 20170817, end: 20180924
  21. PEPCID [Concomitant]
     Active Substance: FAMOTIDINE
     Indication: GASTROOESOPHAGEAL REFLUX DISEASE
     Dosage: 20 MILLIGRAM
     Route: 048
     Dates: start: 2017
  22. ATIVAN [Concomitant]
     Active Substance: LORAZEPAM
     Indication: ANXIETY
     Dosage: .5 MILLIGRAM
     Route: 048
     Dates: start: 20170816
  23. BACLOFEN. [Concomitant]
     Active Substance: BACLOFEN
     Indication: HYPERSENSITIVITY
     Dosage: 10 MILLIGRAM
     Route: 048
     Dates: start: 20170622
  24. VENETOCLAX. [Concomitant]
     Active Substance: VENETOCLAX
     Dosage: 200 MILLIGRAM
     Route: 048
     Dates: start: 20170707
  25. PERICOLACE [Concomitant]
     Indication: CONSTIPATION
     Dosage: 2 TABLET
     Route: 048
     Dates: start: 20170706
  26. TRIAMCINOLONE [Concomitant]
     Active Substance: TRIAMCINOLONE
     Indication: PSORIASIS
     Dosage: .2 PERCENT
     Route: 061
     Dates: start: 2017
  27. ISAVUCONAZOLE [Concomitant]
     Active Substance: ISAVUCONAZOLE
     Indication: HYPERSENSITIVITY
     Dosage: 10 MILLIGRAM
     Route: 048
     Dates: start: 20170622
  28. LORAZEPAM. [Concomitant]
     Active Substance: LORAZEPAM
     Indication: ANXIETY
     Dosage: .5 MILLIGRAM
     Route: 048
     Dates: start: 20180520
  29. ZOLEDRONIC ACID [Concomitant]
     Active Substance: ZOLEDRONIC ACID
     Indication: SPINAL STENOSIS
     Dosage: 4 MILLIGRAM
     Route: 041
     Dates: start: 20180712
  30. AZACITIDINE. [Suspect]
     Active Substance: AZACITIDINE
     Dosage: 23.6 MILLIGRAM/SQ. METER
     Route: 041
     Dates: start: 20180903
  31. COLESEVELAM [Concomitant]
     Active Substance: COLESEVELAM
     Indication: DIARRHOEA
     Dosage: 625 MILLIGRAM
     Route: 048
     Dates: start: 20170712
  32. LOVENOX [Concomitant]
     Active Substance: ENOXAPARIN SODIUM
     Indication: THROMBOSIS PROPHYLAXIS
     Route: 065
     Dates: start: 20170705
  33. CEFDINIR. [Concomitant]
     Active Substance: CEFDINIR
     Indication: INFECTION PROPHYLAXIS
     Dosage: 600 MILLIGRAM
     Route: 048
     Dates: start: 20170710
  34. HYDROCODONE-ACETAMINOPHEN [Concomitant]
     Active Substance: ACETAMINOPHEN\HYDROCODONE
     Indication: BACK PAIN
     Dosage: 1 TABLET
     Route: 048
     Dates: start: 20180603
  35. LACTATED RINGERS SOLUTION [Concomitant]
     Active Substance: CALCIUM CHLORIDE\POTASSIUM CHLORIDE\SODIUM CHLORIDE\SODIUM LACTATE
     Indication: DEHYDRATION
     Dosage: 1000 MILLILITER
     Route: 041
     Dates: start: 20170716
  36. NORMAL SALINE [Concomitant]
     Active Substance: SODIUM CHLORIDE
     Indication: PROPHYLAXIS
     Dosage: .9 PERCENT
     Route: 041
     Dates: start: 20180705, end: 20180714

REACTIONS (1)
  - Intestinal obstruction [Recovered/Resolved]

NARRATIVE: CASE EVENT DATE: 20181022
